FAERS Safety Report 9027326 (Version 1)
Quarter: 2013Q1

REPORT INFORMATION
  Report Type: Spontaneous
  Country: US (occurrence: US)
  Receive Date: 20130123
  Receipt Date: 20130123
  Transmission Date: 20140127
  Serious: No
  Sender: FDA-Public Use
  Company Number: US-009507513-1301USA006672

PATIENT
  Sex: Male
  Weight: 88.89 kg

DRUGS (3)
  1. VICTRELIS [Suspect]
     Dosage: 800 MG, Q8H
     Route: 048
  2. PEGASYS [Suspect]
  3. RIBAPAK [Suspect]
     Dosage: MIS 600/DAY

REACTIONS (1)
  - Fatigue [Unknown]
